FAERS Safety Report 10485924 (Version 3)
Quarter: 2015Q1

REPORT INFORMATION
  Report Type: Spontaneous
  Country: FR (occurrence: FR)
  Receive Date: 20141001
  Receipt Date: 20150202
  Transmission Date: 20150720
  Serious: Yes (Hospitalization)
  Sender: FDA-Public Use
  Company Number: FR-ABBVIE-14K-056-1288489-00

PATIENT
  Age: 45 Year
  Sex: Female

DRUGS (3)
  1. INNOHEP [Concomitant]
     Active Substance: TINZAPARIN SODIUM
     Indication: PRODUCT USED FOR UNKNOWN INDICATION
     Route: 058
     Dates: start: 20140619, end: 20140819
  2. HUMIRA [Suspect]
     Active Substance: ADALIMUMAB
     Indication: PRODUCT USED FOR UNKNOWN INDICATION
     Route: 058
     Dates: start: 201212, end: 20140829
  3. INEXIUM [Concomitant]
     Active Substance: ESOMEPRAZOLE
     Indication: DYSPEPSIA
     Dates: start: 201403

REACTIONS (4)
  - Pulmonary embolism [Recovered/Resolved]
  - Haemodynamic instability [Recovered/Resolved]
  - Urinary bladder haemorrhage [Recovering/Resolving]
  - International normalised ratio abnormal [Unknown]

NARRATIVE: CASE EVENT DATE: 2014
